FAERS Safety Report 6343711-3 (Version None)
Quarter: 2009Q3

REPORT INFORMATION
  Report Type: 
  Country: None (occurrence: None)
  Receive Date: 20090908
  Receipt Date: 20090903
  Transmission Date: 20100115
  Serious: Yes (Other)
  Sender: FDA-Public Use
  Company Number: A0805454A

PATIENT
  Sex: Female
  Weight: 98 kg

DRUGS (4)
  1. ELTROMBOPAG [Suspect]
     Indication: THROMBOCYTOPENIA
     Dosage: 25MG PER DAY
     Route: 048
     Dates: start: 20090423, end: 20090506
  2. PLACEBO [Suspect]
     Indication: THROMBOCYTOPENIA
     Route: 048
     Dates: start: 20090507
  3. PEG-INTRON [Suspect]
     Dosage: 150MCG WEEKLY
     Route: 058
     Dates: start: 20090507
  4. REBETOL [Suspect]
     Route: 048
     Dates: start: 20090507

REACTIONS (1)
  - VISUAL ACUITY REDUCED [None]
